FAERS Safety Report 8025272-6 (Version None)
Quarter: 2012Q1

REPORT INFORMATION
  Report Type: 
  Country: None (occurrence: None)
  Receive Date: 20120105
  Receipt Date: 20111221
  Transmission Date: 20120608
  Serious: Yes (Hospitalization)
  Sender: FDA-Public Use
  Company Number: TW-ROCHE-1018224

PATIENT
  Sex: Female

DRUGS (12)
  1. MYCOPHENOLATE MOFETIL (CELLCEPT) [Concomitant]
     Indication: TRANSPLANT REJECTION
     Route: 048
     Dates: start: 20080202
  2. MIRCERA [Suspect]
     Indication: NEPHROGENIC ANAEMIA
     Route: 058
     Dates: start: 20110531, end: 20110901
  3. ALLOPURINOL [Concomitant]
     Route: 048
     Dates: start: 20080202
  4. FOLIC ACID [Concomitant]
     Route: 048
  5. METHYLPREDNISOLONE [Concomitant]
     Route: 048
  6. CRESTOR [Concomitant]
     Route: 048
  7. CARDOL (AUSTRALIA) [Concomitant]
     Route: 048
  8. MYCOPHENOLATE MOFETIL (CELLCEPT) [Concomitant]
  9. IMMUNOSUPPRESSANT [Suspect]
     Indication: PROPHYLAXIS AGAINST TRANSPLANT REJECTION
  10. MIRCERA [Suspect]
     Route: 058
     Dates: start: 20110901, end: 20111213
  11. PLENDIL [Concomitant]
     Indication: HYPERTENSION
     Route: 048
     Dates: start: 20080202
  12. SODIUM BICARBONATE [Concomitant]
     Route: 048

REACTIONS (2)
  - ANAEMIA [None]
  - ILL-DEFINED DISORDER [None]
